FAERS Safety Report 6277813-7 (Version None)
Quarter: 2009Q3

REPORT INFORMATION
  Report Type: 
  Country: None (occurrence: None)
  Receive Date: 20090717
  Receipt Date: 20090717
  Transmission Date: 20100115
  Serious: Yes (Hospitalization)
  Sender: FDA-Public Use
  Company Number: None

PATIENT
  Age: 4 Year
  Sex: Female
  Weight: 16 kg

DRUGS (1)
  1. TYLENOL W/ CODEINE [Suspect]
     Indication: PAIN
     Dosage: 5ML EVERY 4 HR PRN PO
     Route: 048
     Dates: start: 20090611, end: 20090614

REACTIONS (4)
  - ALANINE AMINOTRANSFERASE INCREASED [None]
  - CONSTIPATION [None]
  - INTESTINAL DILATATION [None]
  - VOMITING [None]
